FAERS Safety Report 4335261-0 (Version None)
Quarter: 2004Q2

REPORT INFORMATION
  Report Type: 
  Country: None (occurrence: None)
  Receive Date: 20040408
  Receipt Date: 20040405
  Transmission Date: 20050107
  Serious: Yes (Hospitalization)
  Sender: FDA-Public Use
  Company Number: FR-MERCK-0404FRA00014

PATIENT
  Age: 58 Year
  Sex: Female

DRUGS (2)
  1. ASPIRIN LYSINE [Suspect]
     Route: 048
     Dates: end: 20040115
  2. VIOXX [Suspect]
     Indication: LOCALISED OSTEOARTHRITIS
     Route: 048
     Dates: start: 20031215, end: 20040115

REACTIONS (1)
  - VASCULITIS [None]
